FAERS Safety Report 5919533-1 (Version None)
Quarter: 2008Q4

REPORT INFORMATION
  Report Type: 
  Country: None (occurrence: None)
  Receive Date: 20081014
  Receipt Date: 20081014
  Transmission Date: 20090506
  Serious: Yes (Other)
  Sender: FDA-Public Use
  Company Number: None

PATIENT
  Sex: Female
  Weight: 45.3597 kg

DRUGS (2)
  1. OMEPRAZOLE [Suspect]
     Indication: GASTROOESOPHAGEAL REFLUX DISEASE
     Dates: start: 20080902, end: 20080908
  2. OMEPRAZOLE [Suspect]
     Indication: OROPHARYNGEAL PAIN
     Dates: start: 20080902, end: 20080908

REACTIONS (3)
  - CHAPPED LIPS [None]
  - PARAESTHESIA ORAL [None]
  - STOMATITIS [None]
